FAERS Safety Report 6841315-7 (Version None)
Quarter: 2010Q3

REPORT INFORMATION
  Report Type: 
  Country: None (occurrence: None)
  Receive Date: 20100714
  Receipt Date: 20070703
  Transmission Date: 20110219
  Serious: No
  Sender: FDA-Public Use
  Company Number: US-PFIZER INC-2007055729

PATIENT
  Sex: Female
  Weight: 75.909 kg

DRUGS (2)
  1. CHANTIX [Suspect]
     Indication: SMOKING CESSATION THERAPY
     Dates: start: 20070101, end: 20070101
  2. CHANTIX [Suspect]
     Dates: start: 20070101, end: 20070101

REACTIONS (2)
  - NASOPHARYNGITIS [None]
  - RASH [None]
